FAERS Safety Report 7769416-X (Version None)
Quarter: 2011Q3

REPORT INFORMATION
  Report Type: 
  Country: None (occurrence: None)
  Receive Date: 20110922
  Receipt Date: 20101227
  Transmission Date: 20111222
  Serious: No
  Sender: FDA-Public Use
  Company Number: US-ASTRAZENECA-2010SE61172

PATIENT
  Age: 49 Year
  Sex: Male

DRUGS (2)
  1. SEROQUEL XR [Suspect]
     Indication: HALLUCINATION
     Dosage: AT NIGHT
     Route: 048
  2. SEROQUEL XR [Suspect]
     Indication: SLEEP DISORDER
     Dosage: AT NIGHT
     Route: 048

REACTIONS (5)
  - MENTAL DISORDER [None]
  - DISTURBANCE IN ATTENTION [None]
  - NERVOUSNESS [None]
  - MEMORY IMPAIRMENT [None]
  - HYPERSOMNIA [None]
